FAERS Safety Report 7664303-X (Version None)
Quarter: 2011Q3

REPORT INFORMATION
  Report Type: 
  Country: None (occurrence: None)
  Receive Date: 20110806
  Receipt Date: 20110113
  Transmission Date: 20111222
  Serious: No
  Sender: FDA-Public Use
  Company Number: US-ABBOTT-11P-163-0698852-00

PATIENT
  Sex: Male
  Weight: 113.5 kg

DRUGS (9)
  1. NIASPAN [Suspect]
     Indication: BLOOD CHOLESTEROL INCREASED
     Dates: start: 20030101
  2. METFORMIN HCL [Concomitant]
     Indication: DIABETES MELLITUS
     Dosage: 1000 MG BID
  3. FLOMAX [Concomitant]
     Indication: PROSTATOMEGALY
     Dosage: EVERY NIGHT
  4. ACTOS [Concomitant]
     Indication: DIABETES MELLITUS
  5. LISINOPRIL [Concomitant]
     Indication: HYPERTENSION
  6. AMLODIPINE [Concomitant]
     Indication: PRODUCT USED FOR UNKNOWN INDICATION
  7. TRICOR [Concomitant]
     Indication: BLOOD CHOLESTEROL INCREASED
     Dosage: 145 MG
  8. METOPROLOL TARTRATE [Concomitant]
     Indication: HYPERTENSION
  9. PLAVIX [Concomitant]
     Indication: ANTICOAGULANT THERAPY

REACTIONS (1)
  - MEDICATION RESIDUE [None]
